FAERS Safety Report 6129591-X (Version None)
Quarter: 2009Q1

REPORT INFORMATION
  Report Type: 
  Country: None (occurrence: None)
  Receive Date: 20090324
  Receipt Date: 20090310
  Transmission Date: 20090719
  Serious: Yes (Life-Threatening, Hospitalization, Disabling, Other)
  Sender: FDA-Public Use
  Company Number: NL-PFIZER INC-2005103122

PATIENT

DRUGS (28)
  1. LYRICA [Suspect]
     Indication: POLYNEUROPATHY
     Route: 048
     Dates: start: 20050606, end: 20050615
  2. LYRICA [Suspect]
     Indication: NEUROPATHY PERIPHERAL
  3. ISMN ^GENERICON^ [Concomitant]
     Route: 048
  4. HARZOL [Concomitant]
     Route: 048
  5. SPIRONOLACTONE [Concomitant]
     Route: 048
  6. FUROSEMID [Concomitant]
     Route: 048
  7. ASPIRIN [Concomitant]
     Route: 048
  8. CAPTOPRIL [Concomitant]
     Route: 048
  9. MARCUMAR [Concomitant]
     Route: 048
  10. METFORMIN HCL [Concomitant]
     Route: 048
  11. NAC ^ALIUD PHARMA^ [Concomitant]
     Route: 048
  12. SPIRIVA [Concomitant]
     Route: 048
  13. CODIPRONT [Concomitant]
     Route: 048
  14. OTIX [Concomitant]
     Route: 048
  15. LIPOIC ACID [Concomitant]
     Route: 048
  16. GABAPENTIN [Concomitant]
     Route: 048
  17. ESOMEPRAZOLE [Concomitant]
     Route: 065
  18. ATORVASTATIN [Concomitant]
     Route: 065
  19. ACETYLCYSTEINE [Concomitant]
     Route: 065
  20. TORASEMIDE [Concomitant]
     Route: 065
  21. XIPAMIDE [Concomitant]
     Route: 065
  22. KALIUM RETARD [Concomitant]
     Route: 048
  23. DOXEPIN HCL [Concomitant]
     Route: 065
  24. VALORON ^PARKE-DAVIS^ [Concomitant]
     Route: 048
  25. CLOPIDOGREL [Concomitant]
     Route: 065
  26. LACTULOSE [Concomitant]
     Route: 048
  27. NOVALGIN [Concomitant]
     Route: 048
  28. NULYTELY [Concomitant]
     Route: 048

REACTIONS (8)
  - ACUTE CORONARY SYNDROME [None]
  - ACUTE MYOCARDIAL INFARCTION [None]
  - CARDIAC ENZYMES INCREASED [None]
  - CORONARY ARTERY STENOSIS [None]
  - LONG QT SYNDROME [None]
  - MENTAL DISORDER DUE TO A GENERAL MEDICAL CONDITION [None]
  - RENAL FAILURE ACUTE [None]
  - VENTRICULAR FIBRILLATION [None]
